FAERS Safety Report 4742662-5 (Version None)
Quarter: 2005Q3

REPORT INFORMATION
  Report Type: 
  Country: None (occurrence: None)
  Receive Date: 20050811
  Receipt Date: 20050803
  Transmission Date: 20060218
  Serious: Yes (Other)
  Sender: FDA-Public Use
  Company Number: US-JNJFOC-20050700877

PATIENT
  Sex: Female
  Weight: 86.64 kg

DRUGS (4)
  1. RISPERDAL [Suspect]
     Route: 048
  2. RISPERDAL [Suspect]
     Indication: AUTISM
     Route: 048
  3. SEROQUEL [Concomitant]
     Indication: AUTISM
  4. ZOLOFT [Concomitant]

REACTIONS (4)
  - ENDOMETRIAL CANCER STAGE III [None]
  - EPIDERMAL NAEVUS [None]
  - METASTASIS [None]
  - WOUND INFECTION [None]
